FAERS Safety Report 21059347 (Version 3)
Quarter: 2022Q4

REPORT INFORMATION
  Report Type: Report from Study
  Country: CO (occurrence: CO)
  Receive Date: 20220708
  Receipt Date: 20221121
  Transmission Date: 20230112
  Serious: Yes (Other)
  Sender: FDA-Public Use
  Company Number: CO-BRISTOL-MYERS SQUIBB COMPANY-2022-033930

PATIENT
  Age: 47 Year
  Sex: Male
  Weight: 54 kg

DRUGS (1)
  1. OPDIVO [Suspect]
     Active Substance: NIVOLUMAB
     Indication: Renal cancer
     Dosage: ENDOVENOUS
     Route: 042
     Dates: start: 20200831

REACTIONS (7)
  - Haemoglobin decreased [Unknown]
  - Adverse event [Unknown]
  - Haemorrhage [Unknown]
  - Nausea [Unknown]
  - Weight decreased [Unknown]
  - Hypophagia [Unknown]
  - Constipation [Not Recovered/Not Resolved]

NARRATIVE: CASE EVENT DATE: 20220430
